FAERS Safety Report 5369191-2 (Version None)
Quarter: 2007Q2

REPORT INFORMATION
  Report Type: 
  Country: None (occurrence: None)
  Receive Date: 20070625
  Receipt Date: 20070612
  Transmission Date: 20071010
  Serious: Yes (Hospitalization)
  Sender: FDA-Public Use
  Company Number: FR-ROCHE-502079

PATIENT
  Age: 66 Year
  Sex: Male

DRUGS (2)
  1. CAPECITABINE [Suspect]
     Dosage: FREQUENCY NOT REPORTED.  LAST DOSE REPORTED TO BE 16 MARCH 2007
     Route: 048
     Dates: start: 20070312
  2. RADIOTHERAPY MIXTURE [Suspect]
     Dosage: UNIT: GY LAST DOSE REPORTED AS 16 MARCH 2007
     Route: 065
     Dates: start: 20070512

REACTIONS (2)
  - LUNG DISORDER [None]
  - SMALL INTESTINAL OBSTRUCTION [None]
